FAERS Safety Report 8121793-6 (Version None)
Quarter: 2012Q1

REPORT INFORMATION
  Report Type: 
  Country: None (occurrence: None)
  Receive Date: 20120207
  Receipt Date: 20120207
  Transmission Date: 20120608
  Serious: No
  Sender: FDA-Public Use
  Company Number: None

PATIENT
  Sex: Male
  Weight: 81.4 kg

DRUGS (3)
  1. CARBOPLATIN [Suspect]
     Dosage: 627 MG
  2. TAXOL [Suspect]
     Dosage: 402 MG
  3. BEVACIZUMAB (RHUMAB VEGF) [Suspect]
     Dosage: 1283 MG

REACTIONS (5)
  - VEIN DISORDER [None]
  - HAEMORRHAGE [None]
  - ARTERIAL RUPTURE [None]
  - RESUSCITATION [None]
  - PULMONARY HAEMORRHAGE [None]
